FAERS Safety Report 20649070 (Version 3)
Quarter: 2022Q2

REPORT INFORMATION
  Report Type: Spontaneous
  Country: US (occurrence: US)
  Receive Date: 20220329
  Receipt Date: 20220622
  Transmission Date: 20220721
  Serious: No
  Sender: FDA-Public Use
  Company Number: US-BIOGEN-2022BI01109439

PATIENT
  Age: 42 Year
  Sex: Male

DRUGS (3)
  1. TECFIDERA [Suspect]
     Active Substance: DIMETHYL FUMARATE
     Indication: Product used for unknown indication
     Route: 048
     Dates: start: 202101
  2. TECFIDERA [Suspect]
     Active Substance: DIMETHYL FUMARATE
     Route: 048
     Dates: start: 202204
  3. TECFIDERA [Suspect]
     Active Substance: DIMETHYL FUMARATE
     Route: 048
     Dates: start: 202203

REACTIONS (11)
  - Product dose omission issue [Unknown]
  - Balance disorder [Unknown]
  - Muscle spasms [Unknown]
  - Multiple allergies [Unknown]
  - Gastric disorder [Unknown]
  - Disturbance in attention [Unknown]
  - Constipation [Unknown]
  - Gait disturbance [Unknown]
  - Fall [Recovered/Resolved]
  - Dyspepsia [Unknown]
  - Diarrhoea [Unknown]

NARRATIVE: CASE EVENT DATE: 20220325
